FAERS Safety Report 9792315 (Version 2)
Quarter: 2014Q1

REPORT INFORMATION
  Report Type: Spontaneous
  Country: US (occurrence: US)
  Receive Date: 20140102
  Receipt Date: 20140102
  Transmission Date: 20141002
  Serious: No
  Sender: FDA-Public Use
  Company Number: US-009507513-1312USA003289

PATIENT
  Age: 70 Year
  Sex: Female
  Weight: 61.68 kg

DRUGS (5)
  1. OXYTROL FOR WOMEN [Suspect]
     Indication: PRODUCT USED FOR UNKNOWN INDICATION
     Dosage: 1 DF, Q4D
     Route: 062
     Dates: start: 20131008, end: 20131106
  2. OXYTROL FOR WOMEN [Suspect]
     Dosage: 1 DF, Q4D
     Route: 062
     Dates: start: 20131008, end: 20131106
  3. HALCION [Concomitant]
     Indication: PRODUCT USED FOR UNKNOWN INDICATION
     Dosage: UNK, UNKNOWN
  4. CELEXA [Concomitant]
     Indication: ANXIETY
     Dosage: UNK, UNKNOWN
  5. FLONASE [Concomitant]
     Indication: HEADACHE
     Dosage: UNK, UNKNOWN

REACTIONS (3)
  - Chemical injury [Unknown]
  - Erythema [Unknown]
  - Rash [Recovered/Resolved]
